FAERS Safety Report 6192701-2 (Version None)
Quarter: 2009Q2

REPORT INFORMATION
  Report Type: 
  Country: None (occurrence: None)
  Receive Date: 20090518
  Receipt Date: 20090512
  Transmission Date: 20091009
  Serious: Yes (Hospitalization, Other)
  Sender: FDA-Public Use
  Company Number: BR-ROCHE-632592

PATIENT
  Sex: Female
  Weight: 54 kg

DRUGS (6)
  1. RIVOTRIL [Suspect]
     Indication: INSOMNIA
     Dosage: DOSE: 2 MG/TABLET, FREQUENCY: 0.5 TABLET PER DAY
     Route: 048
     Dates: start: 19990101
  2. RIVOTRIL [Suspect]
     Dosage: DOSE: 2 MG/TABLET, FREQUENCY: 1+0.25 TABLET PER DAY
     Route: 048
  3. LOSARTAN POTASSIUM [Concomitant]
     Indication: HYPERTENSION
     Route: 048
     Dates: start: 20080101
  4. MONOCORDIL [Concomitant]
     Route: 048
     Dates: start: 20080101
  5. ASPIRIN [Concomitant]
     Indication: ANTICOAGULANT THERAPY
     Route: 048
  6. AROPAX [Concomitant]
     Indication: DEPRESSION
     Route: 048
     Dates: end: 20090401

REACTIONS (7)
  - BENIGN NEOPLASM [None]
  - CHEST PAIN [None]
  - DEPENDENCE [None]
  - DRUG INEFFECTIVE [None]
  - ILL-DEFINED DISORDER [None]
  - LARYNGEAL CANCER [None]
  - MYOCARDIAL INFARCTION [None]
